FAERS Safety Report 12660339 (Version 3)
Quarter: 2016Q3

REPORT INFORMATION
  Report Type: Report from Study
  Country: IN (occurrence: IN)
  Receive Date: 20160817
  Receipt Date: 20160831
  Transmission Date: 20161109
  Serious: Yes (Hospitalization)
  Sender: FDA-Public Use
  Company Number: PHHO2016IN011818

PATIENT
  Age: 34 Year
  Sex: Male
  Weight: 66.5 kg

DRUGS (5)
  1. ETORICOXIB [Concomitant]
     Active Substance: ETORICOXIB
     Indication: PROPHYLAXIS
     Dosage: 60 MG, QD
     Route: 048
     Dates: start: 20160112
  2. FOLITRAX [Concomitant]
     Indication: PROPHYLAXIS
     Dosage: 7.5 MG, QW
     Route: 048
     Dates: start: 20160112
  3. FOLVITE [Concomitant]
     Active Substance: FOLIC ACID
     Indication: SUPPLEMENTATION THERAPY
     Dosage: 5 MG, QD
     Route: 048
     Dates: start: 20160112
  4. MOYZEN [Concomitant]
     Indication: PROPHYLAXIS
     Dosage: 2-6-16 SOS
     Route: 061
     Dates: start: 20160602
  5. AIN457 [Suspect]
     Active Substance: SECUKINUMAB
     Indication: PSORIATIC ARTHROPATHY
     Dosage: 150 MG, WITHOUT LOADING REGIMEN/150MG WITH LOADING DOSE REGIMEN/300MG LOADING DOSE REGIMEN
     Route: 058
     Dates: start: 20160727, end: 20160803

REACTIONS (1)
  - Typhoid fever [Recovered/Resolved]

NARRATIVE: CASE EVENT DATE: 20160808
